FAERS Safety Report 4456362-2 (Version None)
Quarter: 2004Q3

REPORT INFORMATION
  Report Type: 
  Country: None (occurrence: None)
  Receive Date: 20040917
  Receipt Date: 20040907
  Transmission Date: 20050211
  Serious: No
  Sender: FDA-Public Use
  Company Number: 04H-083-0272531-00

PATIENT

DRUGS (3)
  1. LEUCOVORIN CALCIUM [Suspect]
     Indication: CHEMOTHERAPY
     Dosage: 200 MG /M2 DAYS 1 + 2 EVERY 2 WEEKS, INTRAVENOUS
     Route: 042
  2. IRINOTECAN [Suspect]
     Indication: CHEMOTHERAPY
     Dosage: 180 MG/M2 DAY 1 EVERY 2 WEEKS INTRAVENOUS BOLUS
     Route: 040
  3. FLUOROURACIL [Suspect]
     Indication: CHEMOTHERAPY
     Dosage: SEE IMAGE
     Route: 040

REACTIONS (1)
  - NEUTROPENIA [None]
